FAERS Safety Report 6957012-3 (Version None)
Quarter: 2010Q3

REPORT INFORMATION
  Report Type: 
  Country: None (occurrence: None)
  Receive Date: 20100827
  Receipt Date: 20100827
  Transmission Date: 20110219
  Serious: Yes (Life-Threatening, Other)
  Sender: FDA-Public Use
  Company Number: None

PATIENT
  Age: 91 Year
  Sex: Female

DRUGS (1)
  1. LISINOPRIL [Suspect]
     Dosage: 10 MG PO DAILY
     Dates: end: 20100820

REACTIONS (2)
  - ACUTE RESPIRATORY FAILURE [None]
  - ANGIOEDEMA [None]
